FAERS Safety Report 23359143 (Version 2)
Quarter: 2024Q1

REPORT INFORMATION
  Report Type: Report from Study
  Country: US (occurrence: US)
  Receive Date: 20240102
  Receipt Date: 20240104
  Transmission Date: 20240409
  Serious: Yes (Other)
  Sender: FDA-Public Use
  Company Number: US-ABBVIE-5566799

PATIENT
  Sex: Female

DRUGS (2)
  1. BYSTOLIC [Suspect]
     Active Substance: NEBIVOLOL HYDROCHLORIDE
     Indication: Product used for unknown indication
     Dosage: FORM STRENGTH: 2.5 MILLIGRAM
     Route: 048
  2. BYSTOLIC [Suspect]
     Active Substance: NEBIVOLOL HYDROCHLORIDE
     Indication: Product used for unknown indication
     Dosage: FORM STRENGTH: 5 MILLIGRAM
     Route: 048

REACTIONS (12)
  - Cerebrovascular accident [Unknown]
  - Facial nerve disorder [Unknown]
  - Herpes zoster [Unknown]
  - Ocular discomfort [Unknown]
  - Abdominal distension [Unknown]
  - Musculoskeletal stiffness [Unknown]
  - Headache [Unknown]
  - Loss of personal independence in daily activities [Unknown]
  - Paranasal sinus discomfort [Unknown]
  - Tremor [Unknown]
  - Brain fog [Unknown]
  - Unevaluable event [Unknown]

NARRATIVE: CASE EVENT DATE: 20210101
